FAERS Safety Report 16042167 (Version 1)
Quarter: 2019Q1

REPORT INFORMATION
  Report Type: Report from Study
  Country: None (occurrence: US)
  Receive Date: 20190306
  Receipt Date: 20190306
  Transmission Date: 20190418
  Serious: Yes (Other)
  Sender: FDA-Public Use
  Company Number: US-ABBVIE-18K-163-2552354-00

PATIENT
  Age: 61 Year
  Sex: Female
  Weight: 70.37 kg

DRUGS (2)
  1. HUMIRA [Suspect]
     Active Substance: ADALIMUMAB
     Indication: CROHN^S DISEASE
     Route: 058
     Dates: start: 2011, end: 201804
  2. HUMIRA [Suspect]
     Active Substance: ADALIMUMAB
     Indication: RHEUMATOID ARTHRITIS

REACTIONS (3)
  - Blood test abnormal [Unknown]
  - Sinusitis [Unknown]
  - Systemic lupus erythematosus [Recovered/Resolved]

NARRATIVE: CASE EVENT DATE: 201708
